FAERS Safety Report 8503580-X (Version None)
Quarter: 2012Q3

REPORT INFORMATION
  Report Type: 
  Country: None (occurrence: None)
  Receive Date: 20120711
  Receipt Date: 20120702
  Transmission Date: 20120928
  Serious: Yes (Other)
  Sender: FDA-Public Use
  Company Number: JP-VERTEX PHARMACEUTICALS INC.-AE-2012-009866

PATIENT
  Age: 62 Year
  Sex: Male

DRUGS (3)
  1. REBETOL [Concomitant]
     Route: 048
     Dates: start: 20120629
  2. PEG-INTRON [Concomitant]
     Route: 058
     Dates: start: 20120629
  3. TELAVIC (TELAPREVIR) [Suspect]
     Route: 048
     Dates: start: 20120629, end: 20120702

REACTIONS (1)
  - RASH [None]
